FAERS Safety Report 8455248 (Version 2)
Quarter: 2012Q4

REPORT INFORMATION
  Report Type: 
  Country: US (occurrence: US)
  Receive Date: 20120313
  Receipt Date: 20121016
  Transmission Date: 20130627
  Serious: Yes (Hospitalization)
  Sender: FDA-Public Use
  Company Number: US-US-EMD SERONO, INC.-7117366

PATIENT
  Age: 36 None
  Sex: Female

DRUGS (4)
  1. REBIF [Suspect]
     Indication: MULTIPLE SCLEROSIS
     Route: 058
     Dates: start: 201112, end: 20120105
  2. XYZAL [Concomitant]
     Indication: SEASONAL ALLERGY
  3. VITAMIN D [Concomitant]
     Indication: VITAMIN D DEFICIENCY
  4. VESICARE [Concomitant]
     Indication: HYPERTONIC BLADDER

REACTIONS (3)
  - Localised infection [Recovered/Resolved]
  - Multiple sclerosis relapse [Recovered/Resolved]
  - Influenza like illness [Recovered/Resolved]
